FAERS Safety Report 10886785 (Version 1)
Quarter: 2015Q1

REPORT INFORMATION
  Report Type: Spontaneous
  Country: JP (occurrence: JP)
  Receive Date: 20150304
  Receipt Date: 20150304
  Transmission Date: 20150721
  Serious: Yes (Death, Hospitalization)
  Sender: FDA-Public Use
  Company Number: GXJP2015JP000583

PATIENT
  Age: 34 Year
  Sex: Male

DRUGS (4)
  1. IRINOTECAN [Suspect]
     Active Substance: IRINOTECAN
     Indication: COLON CANCER METASTATIC
     Route: 033
  2. PICIBANIL [Suspect]
     Active Substance: OK-432
     Indication: COLON CANCER METASTATIC
     Route: 033
  3. CISPLATIN. [Suspect]
     Active Substance: CISPLATIN
     Indication: COLON CANCER METASTATIC
     Route: 033
  4. GIMERACIL\OTERACIL\TEGAFUR [Suspect]
     Active Substance: GIMERACIL\OTERACIL\TEGAFUR
     Indication: COLON CANCER METASTATIC
     Route: 033

REACTIONS (5)
  - Colon cancer metastatic [Fatal]
  - Duodenal ulcer haemorrhage [Unknown]
  - Haematemesis [Unknown]
  - Protein S decreased [Unknown]
  - Malignant neoplasm progression [Fatal]
